FAERS Safety Report 12174228 (Version 3)
Quarter: 2016Q2

REPORT INFORMATION
  Report Type: Spontaneous
  Country: RO (occurrence: RO)
  Receive Date: 20160314
  Receipt Date: 20160519
  Transmission Date: 20160815
  Serious: Yes (Death)
  Sender: FDA-Public Use
  Company Number: RO-ROCHE-1724444

PATIENT
  Age: 75 Year
  Sex: Male
  Weight: 82 kg

DRUGS (7)
  1. NORVASC [Concomitant]
     Active Substance: AMLODIPINE BESYLATE
     Indication: HYPERTENSION
     Route: 048
  2. CLOPIDOGREL [Concomitant]
     Active Substance: CLOPIDOGREL BISULFATE
     Indication: HYPERTENSION
     Route: 048
  3. CLOPIDOGREL [Concomitant]
     Active Substance: CLOPIDOGREL BISULFATE
     Indication: ISCHAEMIC CARDIOMYOPATHY
  4. MABTHERA [Suspect]
     Active Substance: RITUXIMAB
     Indication: RHEUMATOID ARTHRITIS
     Dosage: 1000 MG AT TWO WEEKS EVERY 6 MONTHS
     Route: 042
     Dates: start: 20151216
  5. ROSUCARD [Concomitant]
     Indication: HYPERCHOLESTEROLAEMIA
     Route: 048
  6. LEFLUNOMID [Concomitant]
     Active Substance: LEFLUNOMIDE
     Indication: RHEUMATOID ARTHRITIS
     Route: 048
     Dates: start: 20151110, end: 201602
  7. CONCOR [Concomitant]
     Active Substance: BISOPROLOL FUMARATE
     Indication: HYPERTENSION
     Route: 048

REACTIONS (2)
  - Acute respiratory distress syndrome [Fatal]
  - Influenza [Fatal]

NARRATIVE: CASE EVENT DATE: 201602
